FAERS Safety Report 5941274-5 (Version None)
Quarter: 2008Q4

REPORT INFORMATION
  Report Type: 
  Country: None (occurrence: None)
  Receive Date: 20081103
  Receipt Date: 20081103
  Transmission Date: 20090506
  Serious: Yes (Disabling)
  Sender: FDA-Public Use
  Company Number: None

PATIENT
  Age: 37 Year
  Sex: Female
  Weight: 78.4723 kg

DRUGS (2)
  1. CYMBALTA [Suspect]
     Indication: DEPRESSION
     Dosage: 30MG QD PO
     Route: 048
     Dates: start: 20071022, end: 20081014
  2. CYMBALTA [Suspect]
     Indication: TEMPOROMANDIBULAR JOINT SYNDROME
     Dosage: 30MG QD PO
     Route: 048
     Dates: start: 20071022, end: 20081014

REACTIONS (1)
  - BLOOD PRESSURE INCREASED [None]
